FAERS Safety Report 19574659 (Version 1)
Quarter: 2021Q3

REPORT INFORMATION
  Report Type: Spontaneous
  Country: US (occurrence: US)
  Receive Date: 20210719
  Receipt Date: 20210719
  Transmission Date: 20211014
  Serious: No
  Sender: FDA-Public Use
  Company Number: US-AUROBINDO-AUR-APL-2020-051589

PATIENT
  Age: 10 Year
  Sex: Female

DRUGS (1)
  1. ATOMOXETINE CAPSULES USP 18 MG [Suspect]
     Active Substance: ATOMOXETINE
     Indication: ATTENTION DEFICIT HYPERACTIVITY DISORDER
     Dosage: UNK UNK, ONCE A DAY
     Route: 048

REACTIONS (4)
  - Nausea [Unknown]
  - Product dose omission issue [Unknown]
  - Irritability [Unknown]
  - Lethargy [Unknown]

NARRATIVE: CASE EVENT DATE: 20200929
